FAERS Safety Report 25163277 (Version 2)
Quarter: 2025Q2

REPORT INFORMATION
  Report Type: Spontaneous
  Country: US (occurrence: US)
  Receive Date: 20250404
  Receipt Date: 20250423
  Transmission Date: 20250717
  Serious: Yes (Other)
  Sender: BAUSCH AND LOMB
  Company Number: US-BAUSCH-BL-2025-004575

PATIENT
  Age: 82 Year
  Sex: Female

DRUGS (1)
  1. BUPROPION [Suspect]
     Active Substance: BUPROPION
     Indication: Major depression
     Dosage: XL
     Route: 065

REACTIONS (3)
  - Renal impairment [Unknown]
  - Chronic kidney disease [Unknown]
  - Urinary tract disorder [Unknown]
